FAERS Safety Report 23421864 (Version 3)
Quarter: 2024Q1

REPORT INFORMATION
  Report Type: Spontaneous
  Country: US (occurrence: US)
  Receive Date: 20240119
  Receipt Date: 20240305
  Transmission Date: 20240410
  Serious: No
  Sender: FDA-Public Use
  Company Number: US-PFIZER INC-PV202300209299

PATIENT
  Age: 37 Year
  Sex: Female
  Weight: 105.96 kg

DRUGS (1)
  1. MEDROXYPROGESTERONE ACETATE [Suspect]
     Active Substance: MEDROXYPROGESTERONE ACETATE
     Indication: Contraception
     Dosage: UNK

REACTIONS (3)
  - Device leakage [Unknown]
  - Syringe issue [Unknown]
  - Needle issue [Unknown]
